FAERS Safety Report 9373531 (Version 2)
Quarter: 2013Q3

REPORT INFORMATION
  Report Type: Report from Study
  Country: BR (occurrence: BR)
  Receive Date: 20130627
  Receipt Date: 20130703
  Transmission Date: 20140515
  Serious: Yes (Hospitalization, Other)
  Sender: FDA-Public Use
  Company Number: PHHY2013BR065874

PATIENT
  Age: 48 Year
  Sex: Male
  Weight: 76 kg

DRUGS (11)
  1. MYCOPHENOLIC ACID [Suspect]
     Indication: RENAL TRANSPLANT
     Dosage: 720 MG, BID
     Route: 048
     Dates: start: 20121010, end: 20121113
  2. MYCOPHENOLIC ACID [Suspect]
     Dosage: 360 MG, BID
     Route: 048
     Dates: start: 20121113, end: 20130121
  3. TACROLIMUS SANDOZ [Suspect]
     Indication: RENAL TRANSPLANT
     Dosage: 6 MG, BID
     Route: 048
     Dates: start: 20121010
  4. TACROLIMUS SANDOZ [Suspect]
     Dosage: 2 MG, BID
     Route: 048
  5. BASILIXIMAB [Suspect]
     Indication: RENAL TRANSPLANT
     Dosage: BASILIXIMAB 20 MG D ZERO + D4
     Route: 042
     Dates: start: 20121015, end: 20121019
  6. PREDNISONE SANDOZ [Suspect]
     Indication: RENAL TRANSPLANT
     Dosage: 30 MG, QD
     Route: 048
     Dates: start: 20121015
  7. PREDNISONE SANDOZ [Suspect]
     Dosage: 5 MG, QD
     Route: 048
  8. EVEROLIMUS [Suspect]
     Indication: RENAL TRANSPLANT
     Dosage: 1 MG, BID
     Route: 048
     Dates: start: 20130121
  9. ATENSINA [Concomitant]
     Indication: BLOOD PRESSURE SYSTOLIC
     Dosage: 0.2 MG, TID
     Route: 048
     Dates: start: 20121015
  10. ATENOLOL [Concomitant]
     Indication: BLOOD PRESSURE SYSTOLIC
     Dosage: 25 MG, BID
     Route: 048
     Dates: start: 20121015
  11. OMEPRAZOLE [Concomitant]
     Indication: GASTRITIS
     Dosage: 40 MG, BID
     Route: 048
     Dates: start: 20121015

REACTIONS (18)
  - Urethral stenosis [Recovered/Resolved with Sequelae]
  - Urine output decreased [Recovered/Resolved with Sequelae]
  - Blood urea increased [Recovered/Resolved]
  - Pyelocaliectasis [Recovered/Resolved]
  - Myopathy [Recovered/Resolved]
  - Weight decreased [Recovered/Resolved]
  - General physical health deterioration [Recovered/Resolved]
  - Renal tubular necrosis [Recovered/Resolved]
  - Complications of transplanted kidney [Recovered/Resolved]
  - Cytomegalovirus infection [Recovered/Resolved with Sequelae]
  - Pyrexia [Recovered/Resolved with Sequelae]
  - Abdominal pain [Recovered/Resolved with Sequelae]
  - Gastrointestinal disorder [Recovered/Resolved with Sequelae]
  - Diarrhoea [Recovered/Resolved with Sequelae]
  - Escherichia infection [Recovered/Resolved with Sequelae]
  - Pyuria [Recovered/Resolved with Sequelae]
  - Dysuria [Recovered/Resolved with Sequelae]
  - Urinary tract infection [Recovered/Resolved with Sequelae]
